FAERS Safety Report 13551910 (Version 1)
Quarter: 2017Q2

REPORT INFORMATION
  Report Type: Spontaneous
  Country: DE (occurrence: DE)
  Receive Date: 20170516
  Receipt Date: 20170516
  Transmission Date: 20170830
  Serious: Yes (Life-Threatening, Hospitalization)
  Sender: FDA-Public Use
  Company Number: GXKR2017DE002735

PATIENT

DRUGS (2)
  1. SULFAMETHOXAZOLE+TRIMETHOPRIM [Suspect]
     Active Substance: SULFAMETHOXAZOLE\TRIMETHOPRIM
     Indication: ALVEOLITIS
     Dosage: 1 DF, 3X DAILY
     Route: 048
  2. CANDESARTAN. [Concomitant]
     Active Substance: CANDESARTAN
     Indication: HYPERTENSION

REACTIONS (4)
  - Blood pressure increased [Unknown]
  - Dizziness [Unknown]
  - Palpitations [Unknown]
  - Extrasystoles [Unknown]

NARRATIVE: CASE EVENT DATE: 20170221
